FAERS Safety Report 4668088-0 (Version None)
Quarter: 2005Q2

REPORT INFORMATION
  Report Type: 
  Country: None (occurrence: None)
  Receive Date: 20050520
  Receipt Date: 20050418
  Transmission Date: 20051028
  Serious: Yes (Life-Threatening, Hospitalization, Disabling)
  Sender: FDA-Public Use
  Company Number: US-MERCK-0504USA03217

PATIENT
  Age: 45 Year
  Sex: Female

DRUGS (7)
  1. VIOXX [Suspect]
     Indication: PAIN
     Route: 048
     Dates: start: 20011201, end: 20030101
  2. VIOXX [Suspect]
     Route: 048
     Dates: start: 20011201, end: 20030101
  3. VIOXX [Suspect]
     Route: 048
     Dates: start: 20000901
  4. VIOXX [Suspect]
     Route: 048
     Dates: start: 20011201, end: 20030101
  5. VIOXX [Suspect]
     Route: 048
     Dates: start: 20011201, end: 20030101
  6. VIOXX [Suspect]
     Route: 048
     Dates: start: 20000901
  7. NEXIUM [Concomitant]
     Route: 065

REACTIONS (6)
  - ANXIETY [None]
  - HEADACHE [None]
  - HEART RATE INCREASED [None]
  - PULMONARY EMBOLISM [None]
  - THROMBOPHLEBITIS [None]
  - WHITE BLOOD CELL COUNT INCREASED [None]
